FAERS Safety Report 7657215-9 (Version None)
Quarter: 2011Q3

REPORT INFORMATION
  Report Type: 
  Country: None (occurrence: None)
  Receive Date: 20110804
  Receipt Date: 20110802
  Transmission Date: 20111222
  Serious: Yes (Other)
  Sender: FDA-Public Use
  Company Number: NL-BAYER-2011-067354

PATIENT
  Age: 58 Year
  Sex: Female
  Weight: 147 kg

DRUGS (15)
  1. SPIRONOLACTONE [Concomitant]
     Dosage: 100 MG, QD
     Route: 048
  2. DIAMOX SRC [Concomitant]
     Dosage: 250 MG, BID
     Route: 048
  3. LASIX [Concomitant]
     Dosage: 120 MG, QD
     Route: 048
     Dates: start: 20110715, end: 20110716
  4. BERODUAL [Concomitant]
     Route: 055
  5. ALLOPURINOL [Concomitant]
     Dosage: 100 MG, QD
     Route: 048
  6. PANTOPRAZOLE [Concomitant]
     Dosage: 40 MG, BID
     Route: 048
  7. THIAMINE HYDROCHLORIDE [Concomitant]
     Dosage: 25 MG, UNK
     Route: 048
  8. CIPROFLAXACIN [Suspect]
     Indication: WOUND INFECTION
     Dosage: 400 MG, BID
     Route: 042
     Dates: start: 20110713, end: 20110716
  9. SYMORON [Concomitant]
     Dosage: 40 MG, QD
  10. CLINDAMYCIN [Suspect]
     Indication: WOUND INFECTION
     Dosage: 600 MG, TID
     Dates: start: 20110713, end: 20110716
  11. METFORMIN HCL [Concomitant]
     Dosage: 850 MG, QD
     Route: 048
  12. SPIRIVA [Concomitant]
     Dosage: 18 ?G, UNK
  13. SELOKEEN [Concomitant]
     Dosage: 50 MG, BID
     Dates: start: 20110714, end: 20110715
  14. MODALIM [Concomitant]
     Dosage: 100 MG, QD
     Route: 048
  15. FRAXIPARIN [Concomitant]
     Dosage: 0.6 ML, UNK

REACTIONS (1)
  - HEPATIC NECROSIS [None]
